FAERS Safety Report 19128868 (Version 1)
Quarter: 2021Q2

REPORT INFORMATION
  Report Type: Spontaneous
  Country: US (occurrence: US)
  Receive Date: 20210413
  Receipt Date: 20210413
  Transmission Date: 20210717
  Serious: No
  Sender: FDA-Public Use
  Company Number: US-ALLERGAN-2104128US

PATIENT
  Age: 74 Year
  Sex: Female

DRUGS (1)
  1. LUMIGAN [Suspect]
     Active Substance: BIMATOPROST
     Indication: GLAUCOMA
     Dosage: 2 GTT, QHS
     Route: 047
     Dates: start: 20201105, end: 20210211

REACTIONS (12)
  - Hair growth abnormal [Not Recovered/Not Resolved]
  - Ocular hyperaemia [Recovered/Resolved]
  - General physical condition abnormal [Not Recovered/Not Resolved]
  - Eye swelling [Unknown]
  - Eye pruritus [Recovered/Resolved]
  - Product dose omission issue [Unknown]
  - Growth of eyelashes [Not Recovered/Not Resolved]
  - Skin hyperpigmentation [Not Recovered/Not Resolved]
  - Headache [Recovered/Resolved]
  - Suspected product quality issue [Unknown]
  - Foreign body sensation in eyes [Unknown]
  - Eye pain [Unknown]

NARRATIVE: CASE EVENT DATE: 202011
